FAERS Safety Report 24736192 (Version 2)
Quarter: 2024Q4

REPORT INFORMATION
  Report Type: Report from Study
  Country: CN (occurrence: CN)
  Receive Date: 20241216
  Receipt Date: 20241220
  Transmission Date: 20250114
  Serious: Yes (Hospitalization)
  Sender: PAREXEL
  Company Number: CN-STEMLINE THERAPEUTICS B.V.-2024-STML-CN006586

PATIENT

DRUGS (15)
  1. ELACESTRANT [Suspect]
     Active Substance: ELACESTRANT
     Indication: Breast cancer metastatic
     Dosage: 345 MG, DAILY
     Route: 065
     Dates: start: 20240827
  2. METHYLCOBALAMIN [Concomitant]
     Active Substance: METHYLCOBALAMIN
     Indication: Numb chin syndrome
     Dosage: 0.5 MG, TID
     Route: 048
     Dates: start: 202402
  3. METHYLCOBALAMIN [Concomitant]
     Active Substance: METHYLCOBALAMIN
     Indication: Hypoaesthesia
  4. TRIMETAZIDINE DIHYDROCHLORIDE [Concomitant]
     Active Substance: TRIMETAZIDINE DIHYDROCHLORIDE
     Indication: Renal impairment
     Dosage: 20 MG, TID
     Route: 048
     Dates: start: 202402
  5. TRIMETAZIDINE DIHYDROCHLORIDE [Concomitant]
     Active Substance: TRIMETAZIDINE DIHYDROCHLORIDE
     Indication: Blood creatinine decreased
  6. RIVAROXABAN [Concomitant]
     Active Substance: RIVAROXABAN
     Indication: Pulmonary embolism
     Dosage: 10 MG, DAILY
     Route: 048
     Dates: start: 202208
  7. PHOSPHOLIPID [Concomitant]
     Active Substance: PHOSPHOLIPID
     Indication: Prophylaxis
     Dosage: 456 MG, TID
     Route: 048
     Dates: start: 202404
  8. COENZYME Q10 [Concomitant]
     Active Substance: DIETARY SUPPLEMENT\UBIDECARENONE
     Indication: Functional gastrointestinal disorder
     Dosage: 100 MG, DAILY
     Route: 048
     Dates: start: 202302
  9. VITAMIN C [Concomitant]
     Active Substance: ASCORBIC ACID
     Indication: Functional gastrointestinal disorder
     Dosage: 1 G, DAILY
     Route: 048
     Dates: start: 202302
  10. VITAMIN E [Concomitant]
     Active Substance: .ALPHA.-TOCOPHEROL
     Indication: Functional gastrointestinal disorder
     Dosage: 1 G, DAILY
     Route: 048
     Dates: start: 202302
  11. CEFOPERAZONE SODIUM\SULBACTAM [Concomitant]
     Active Substance: CEFOPERAZONE SODIUM\SULBACTAM
     Indication: Pyrexia
     Dosage: 1 G, DAILY
     Route: 041
     Dates: start: 20241106, end: 20241108
  12. DEXTROSE [Concomitant]
     Active Substance: DEXTROSE MONOHYDRATE
     Indication: Pyrexia
     Dosage: 10 G, DAILY
     Route: 041
     Dates: start: 20241106, end: 20241108
  13. ACETAMINOPHEN\TRAMADOL HYDROCHLORIDE [Concomitant]
     Active Substance: ACETAMINOPHEN\TRAMADOL HYDROCHLORIDE
     Indication: Analgesic therapy
     Dosage: 325 MG
     Route: 048
     Dates: start: 20241106, end: 20241110
  14. ACETAMINOPHEN\TRAMADOL HYDROCHLORIDE [Concomitant]
     Active Substance: ACETAMINOPHEN\TRAMADOL HYDROCHLORIDE
     Indication: Pyrexia
  15. DENOSUMAB [Concomitant]
     Active Substance: DENOSUMAB
     Indication: Metastases to bone
     Dosage: 120 MG, Q4WEEKS
     Route: 058
     Dates: start: 2024

REACTIONS (1)
  - Osteomyelitis [Not Recovered/Not Resolved]

NARRATIVE: CASE EVENT DATE: 20241208
